FAERS Safety Report 22329116 (Version 1)
Quarter: 2023Q2

REPORT INFORMATION
  Report Type: Report from Study
  Country: CO (occurrence: CO)
  Receive Date: 20230517
  Receipt Date: 20230517
  Transmission Date: 20230721
  Serious: Yes (Hospitalization)
  Sender: FDA-Public Use
  Company Number: CO-ABBVIE-4702388

PATIENT
  Age: 67 Year
  Sex: Female
  Weight: 56 kg

DRUGS (4)
  1. HUMIRA [Suspect]
     Active Substance: ADALIMUMAB
     Indication: Rheumatoid arthritis
     Dosage: FORM STRENGTH: 40 MILLIGRAM
     Route: 058
     Dates: end: 20230202
  2. HUMIRA [Suspect]
     Active Substance: ADALIMUMAB
  3. LEVOTHYROXINE SODIUM [Concomitant]
     Active Substance: LEVOTHYROXINE SODIUM
     Indication: Product used for unknown indication
     Dosage: FORM STRENGTH: 50 MG
     Route: 048
     Dates: start: 2015, end: 2023
  4. LEVOTHYROXINE SODIUM [Concomitant]
     Active Substance: LEVOTHYROXINE SODIUM
     Indication: Product used for unknown indication
     Dosage: TAKE 1 TABLET FROM MONDAY TO FRIDAY AND ON AND ON SATURDAY AND SUNDAY SHE MUST TAKE 2 TABLETS.
     Route: 048
     Dates: start: 202304

REACTIONS (28)
  - Arthralgia [Recovering/Resolving]
  - Headache [Recovering/Resolving]
  - Skin abrasion [Recovering/Resolving]
  - Bone pain [Recovering/Resolving]
  - Laziness [Not Recovered/Not Resolved]
  - Fall [Recovering/Resolving]
  - Balance disorder [Not Recovered/Not Resolved]
  - Hypertension [Not Recovered/Not Resolved]
  - Breast haematoma [Recovering/Resolving]
  - Drug ineffective [Not Recovered/Not Resolved]
  - Haematoma [Recovering/Resolving]
  - Inflammation [Not Recovered/Not Resolved]
  - Urinary incontinence [Recovering/Resolving]
  - Inflammation [Recovered/Resolved]
  - Stress [Not Recovered/Not Resolved]
  - Erythema [Not Recovered/Not Resolved]
  - Fear [Not Recovered/Not Resolved]
  - Pyrexia [Recovering/Resolving]
  - Renal disorder [Recovering/Resolving]
  - Cardiac disorder [Not Recovered/Not Resolved]
  - Chest pain [Recovering/Resolving]
  - Blood pressure abnormal [Not Recovered/Not Resolved]
  - Weight increased [Recovering/Resolving]
  - Thyroid disorder [Recovering/Resolving]
  - Pain [Unknown]
  - Renal pain [Unknown]
  - Swelling face [Unknown]
  - Peripheral swelling [Unknown]

NARRATIVE: CASE EVENT DATE: 20230313
